FAERS Safety Report 6659649-8 (Version None)
Quarter: 2010Q1

REPORT INFORMATION
  Report Type: 
  Country: None (occurrence: None)
  Receive Date: 20100325
  Receipt Date: 20100312
  Transmission Date: 20100710
  Serious: Yes (Hospitalization)
  Sender: FDA-Public Use
  Company Number: TCI201A00945

PATIENT
  Age: 71 Year
  Sex: Male

DRUGS (2)
  1. LANSOPRAZOLE [Suspect]
     Dosage: 14 MG (15 MG, 1 - 2)
  2. WARFARIN POTASSIUM [Suspect]
     Indication: ATRIAL FIBRILLATION
     Dosage: 1 MG (1 MG, 1 D), PER ORAL
     Route: 048

REACTIONS (2)
  - DRUG INTERACTION [None]
  - INTERNATIONAL NORMALISED RATIO INCREASED [None]
